FAERS Safety Report 5640958-6 (Version None)
Quarter: 2008Q1

REPORT INFORMATION
  Report Type: 
  Country: None (occurrence: None)
  Receive Date: 20080227
  Receipt Date: 20080211
  Transmission Date: 20080703
  Serious: Yes (Hospitalization)
  Sender: FDA-Public Use
  Company Number: IT-TEVA-167424ISR

PATIENT
  Age: 69 Year
  Sex: Male

DRUGS (2)
  1. ENALAPRIL MALEATE [Suspect]
     Dates: start: 20061201, end: 20070201
  2. TACROLIMUS [Suspect]
     Dates: start: 20030101

REACTIONS (3)
  - DRUG INTERACTION [None]
  - GASTROENTERITIS [None]
  - RENAL FAILURE [None]
